FAERS Safety Report 15617151 (Version 1)
Quarter: 2018Q4

REPORT INFORMATION
  Report Type: Spontaneous
  Country: US (occurrence: PR)
  Receive Date: 20181108
  Receipt Date: 20181108
  Transmission Date: 20190205
  Serious: No
  Sender: FDA-Public Use
  Company Number: None

PATIENT
  Age: 43 Year
  Sex: Female
  Weight: 88.2 kg

DRUGS (8)
  1. BACOFLEN [Concomitant]
  2. GABAPENTIN. [Concomitant]
     Active Substance: GABAPENTIN
  3. CLONAZEPAM. [Concomitant]
     Active Substance: CLONAZEPAM
  4. LIPRO (DIETARY SUPPLEMENT\HERBALS) [Suspect]
     Active Substance: DIETARY SUPPLEMENT\HERBALS
     Indication: WEIGHT CONTROL
     Route: 048
     Dates: start: 20181011, end: 20181101
  5. TEMAZEPAM. [Concomitant]
     Active Substance: TEMAZEPAM
  6. ETODOLAC. [Concomitant]
     Active Substance: ETODOLAC
  7. SYNTHROID [Concomitant]
     Active Substance: LEVOTHYROXINE SODIUM
  8. ADIPOTRIM XT [Suspect]
     Active Substance: DIETARY SUPPLEMENT\HERBALS
     Indication: WEIGHT CONTROL
     Dosage: ?          QUANTITY:1 CAPSULE(S);?
     Route: 048
     Dates: start: 20181011, end: 20181101

REACTIONS (5)
  - Abdominal distension [None]
  - Palpitations [None]
  - Feeling abnormal [None]
  - Constipation [None]
  - Abdominal pain upper [None]

NARRATIVE: CASE EVENT DATE: 20181014
